FAERS Safety Report 9867004 (Version 1)
Quarter: 2014Q1

REPORT INFORMATION
  Report Type: Spontaneous
  Country: US (occurrence: None)
  Receive Date: 20140203
  Receipt Date: 20140203
  Transmission Date: 20141002
  Serious: Yes (Hospitalization)
  Sender: FDA-Public Use
  Company Number: None

PATIENT
  Age: 33 Year
  Sex: Male
  Weight: 54.43 kg

DRUGS (1)
  1. HORIZANT [Suspect]
     Indication: RESTLESS LEGS SYNDROME
     Route: 048
     Dates: start: 20140130, end: 20140130

REACTIONS (21)
  - Fatigue [None]
  - Nightmare [None]
  - Hyperhidrosis [None]
  - Fear [None]
  - Gait disturbance [None]
  - Anger [None]
  - Disturbance in attention [None]
  - Amnesia [None]
  - Feeling abnormal [None]
  - Memory impairment [None]
  - Hypophagia [None]
  - Fluid intake reduced [None]
  - Cognitive disorder [None]
  - Slow speech [None]
  - Gait disturbance [None]
  - Dysarthria [None]
  - Dehydration [None]
  - Vertigo [None]
  - Fatigue [None]
  - Headache [None]
  - Impaired work ability [None]
